FAERS Safety Report 4742151-8 (Version None)
Quarter: 2005Q3

REPORT INFORMATION
  Report Type: 
  Country: None (occurrence: None)
  Receive Date: 20050811
  Receipt Date: 20050304
  Transmission Date: 20060218
  Serious: No
  Sender: FDA-Public Use
  Company Number: US-GLAXOSMITHKLINE-A0548379A

PATIENT
  Sex: Female

DRUGS (3)
  1. PAXIL CR [Suspect]
     Indication: PANIC DISORDER
     Dosage: 12.5MG PER DAY
     Route: 048
     Dates: start: 20040701
  2. ATENOLOL [Concomitant]
  3. ZOCOR [Concomitant]

REACTIONS (4)
  - DIZZINESS [None]
  - HEART RATE IRREGULAR [None]
  - INSOMNIA [None]
  - TREMOR [None]
